FAERS Safety Report 24277514 (Version 1)
Quarter: 2024Q3

REPORT INFORMATION
  Report Type: Spontaneous
  Country: ES (occurrence: ES)
  Receive Date: 20240903
  Receipt Date: 20240903
  Transmission Date: 20241016
  Serious: Yes (Other)
  Sender: MYLAN
  Company Number: ES-JNJFOC-20240837861

PATIENT
  Age: 43 Year
  Sex: Female
  Weight: 62 kg

DRUGS (11)
  1. DEXAMETHASONE [Suspect]
     Active Substance: DEXAMETHASONE
     Indication: Plasma cell myeloma
     Dosage: UNK (2ND LINE- CYCLE 1- 05/05/23)
     Route: 065
     Dates: start: 20230505
  2. DEXAMETHASONE [Suspect]
     Active Substance: DEXAMETHASONE
     Dosage: UNK (2ND LINE- CYCLE 2- 30/05/23)
     Route: 065
     Dates: start: 20230530
  3. DEXAMETHASONE [Suspect]
     Active Substance: DEXAMETHASONE
     Dosage: UNK (2ND LINE- CYCLE 3- 27/06/23)
     Route: 065
     Dates: start: 20230627
  4. LENALIDOMIDE [Suspect]
     Active Substance: LENALIDOMIDE
     Indication: Plasma cell myeloma
     Dosage: UNK (2ND LINE- CYCLE 1- 05/05/23)
     Route: 065
     Dates: start: 20230505
  5. LENALIDOMIDE [Suspect]
     Active Substance: LENALIDOMIDE
     Dosage: UNK (2ND LINE- CYCLE 2- 30/05/23)
     Route: 065
     Dates: start: 20230530
  6. LENALIDOMIDE [Suspect]
     Active Substance: LENALIDOMIDE
     Dosage: UNK (2ND LINE- CYCLE 3- 27/06/23)
     Route: 065
     Dates: start: 20230627
  7. DARZALEX [Suspect]
     Active Substance: DARATUMUMAB
     Indication: Plasma cell myeloma
     Dosage: UNK (2ND LINE- CYCLE 1 - 05/05/2023)
     Route: 065
     Dates: start: 20230505
  8. DARZALEX [Suspect]
     Active Substance: DARATUMUMAB
     Dosage: UNK (2ND LINE- CYCLE 2- 30/05/23)
     Route: 065
     Dates: start: 20230530
  9. DARZALEX [Suspect]
     Active Substance: DARATUMUMAB
     Dosage: UNK (2ND LINE- CYCLE 3- 27/06/23)
     Route: 065
     Dates: start: 20230627
  10. VELCADE [Suspect]
     Active Substance: BORTEZOMIB
     Indication: Plasma cell myeloma
     Dosage: UNK (2ND LINE CYCLE 4 -08-FEB-2023)
     Route: 065
     Dates: start: 20230208
  11. ZOMETA [Concomitant]
     Active Substance: ZOLEDRONIC ACID
     Dosage: UNK
     Route: 065

REACTIONS (3)
  - Plasmacytoma [Unknown]
  - Hypokalaemia [Unknown]
  - Intentional product use issue [Unknown]
